FAERS Safety Report 5259334-3 (Version None)
Quarter: 2007Q1

REPORT INFORMATION
  Report Type: 
  Country: None (occurrence: None)
  Receive Date: 20070305
  Receipt Date: 20070209
  Transmission Date: 20070707
  Serious: Yes (Death)
  Sender: FDA-Public Use
  Company Number: ENT 2007-0015

PATIENT
  Age: 78 Year
  Sex: Male

DRUGS (9)
  1. COMTAN [Suspect]
     Indication: PARKINSON'S DISEASE
     Dosage: 1200 MG (200 MG, 6 IN 1 D) UNKNOWN
     Dates: start: 20061201
  2. SYMMETREL [Concomitant]
  3. OXAZEPAMUM [Concomitant]
  4. PANTOZOL [Concomitant]
  5. MAALOX PLUS/NET [Concomitant]
  6. SELEGILINE HYDROCHLORIDE [Concomitant]
  7. FLUDROCORTISONE ACETATE [Concomitant]
  8. ASCAL [Concomitant]
  9. PERMAX [Concomitant]

REACTIONS (5)
  - APNOEA [None]
  - AUTONOMIC NEUROPATHY [None]
  - BRADYCARDIA [None]
  - HYPERKINESIA [None]
  - HYPERTHERMIA [None]
